FAERS Safety Report 16367922 (Version 1)
Quarter: 2019Q2

REPORT INFORMATION
  Report Type: Spontaneous
  Country: JP (occurrence: JP)
  Receive Date: 20190529
  Receipt Date: 20190529
  Transmission Date: 20190711
  Serious: Yes (Other)
  Sender: FDA-Public Use
  Company Number: JP-PFIZER INC-2019221117

PATIENT
  Age: 75 Year
  Sex: Male

DRUGS (1)
  1. EFFEXOR [Suspect]
     Active Substance: VENLAFAXINE HYDROCHLORIDE
     Dosage: 225 MG, DAILY
     Route: 048

REACTIONS (4)
  - Cerebral infarction [Unknown]
  - Loss of consciousness [Unknown]
  - General physical health deterioration [Unknown]
  - Dysphagia [Unknown]
